FAERS Safety Report 9188076 (Version 1)
Quarter: 2013Q1

REPORT INFORMATION
  Report Type: Report from Study
  Country: JP (occurrence: JP)
  Receive Date: 20130325
  Receipt Date: 20130325
  Transmission Date: 20140127
  Serious: Yes (Other)
  Sender: FDA-Public Use
  Company Number: JP-VIIV HEALTHCARE LIMITED-B0875059A

PATIENT
  Age: 66 None
  Sex: Male

DRUGS (46)
  1. LEXIVA [Suspect]
     Indication: ACQUIRED IMMUNODEFICIENCY SYNDROME
     Dosage: 1400MG TWICE PER DAY
     Route: 048
     Dates: start: 20070522, end: 20070618
  2. EPZICOM [Suspect]
     Indication: ACQUIRED IMMUNODEFICIENCY SYNDROME
     Route: 048
     Dates: start: 20060606, end: 20080802
  3. EPZICOM [Suspect]
     Indication: ACQUIRED IMMUNODEFICIENCY SYNDROME
     Route: 048
     Dates: start: 20080908
  4. REYATAZ [Suspect]
     Indication: ACQUIRED IMMUNODEFICIENCY SYNDROME
     Route: 048
     Dates: start: 20070619, end: 20080802
  5. STOCRIN [Concomitant]
     Indication: ACQUIRED IMMUNODEFICIENCY SYNDROME
     Route: 048
     Dates: start: 20010912, end: 20010912
  6. STOCRIN [Concomitant]
     Indication: ACQUIRED IMMUNODEFICIENCY SYNDROME
     Route: 048
     Dates: start: 20020204, end: 20020507
  7. STOCRIN [Concomitant]
     Indication: ACQUIRED IMMUNODEFICIENCY SYNDROME
     Route: 048
     Dates: start: 20020508, end: 20061113
  8. STOCRIN [Concomitant]
     Indication: ACQUIRED IMMUNODEFICIENCY SYNDROME
     Route: 048
     Dates: start: 20061226, end: 20070521
  9. PAXIL [Concomitant]
     Indication: PANIC DISORDER
     Dosage: 10MG PER DAY
     Route: 048
     Dates: end: 20080802
  10. LENDORMIN [Concomitant]
     Indication: PANIC DISORDER
     Route: 048
     Dates: end: 20080802
  11. NOVOLIN N [Concomitant]
     Indication: DIABETES MELLITUS
     Dosage: 5IU PER DAY
     Dates: end: 20080510
  12. NOVOLIN N [Concomitant]
     Indication: DIABETES MELLITUS
     Dosage: 6IU PER DAY
     Dates: start: 20090129, end: 20090203
  13. NOVOLIN R [Concomitant]
     Indication: DIABETES MELLITUS
     Dosage: 14IU TWICE PER DAY
     Dates: end: 20080510
  14. NOVOLIN R [Concomitant]
     Indication: DIABETES MELLITUS
     Dosage: 15IU TWICE PER DAY
     Dates: start: 20080824, end: 20081025
  15. NOVOLIN R [Concomitant]
     Indication: DIABETES MELLITUS
     Dosage: 9IU THREE TIMES PER DAY
     Dates: start: 20090130, end: 20090220
  16. NOVOLIN R [Concomitant]
     Indication: DIABETES MELLITUS
     Dosage: 20IU THREE TIMES PER DAY
     Dates: start: 20090305, end: 20090325
  17. GASTER [Concomitant]
     Indication: ABDOMINAL PAIN UPPER
     Dosage: 10MG TWICE PER DAY
     Route: 065
     Dates: end: 20080802
  18. GASTER [Concomitant]
     Indication: PROPHYLAXIS AGAINST GASTROINTESTINAL ULCER
     Dosage: 20MG PER DAY
     Route: 065
     Dates: start: 20080919
  19. RECOMBINATE [Concomitant]
     Indication: FACTOR VIII DEFICIENCY
     Dates: end: 20070813
  20. RECOMBINATE [Concomitant]
     Indication: FACTOR VIII DEFICIENCY
     Dosage: 1IU3 TWO TIMES PER WEEK
     Dates: start: 20080205, end: 20080803
  21. ADVATE [Concomitant]
     Indication: FACTOR VIII DEFICIENCY
     Dates: start: 20070814, end: 20080107
  22. CROSS EIGHT M [Concomitant]
     Indication: FACTOR VIII DEFICIENCY
     Dosage: 1IU3 TWO TIMES PER WEEK
     Dates: start: 20080108, end: 20080204
  23. CROSS EIGHT M [Concomitant]
     Indication: FACTOR VIII DEFICIENCY
     Dosage: 1500IU TWICE PER DAY
     Dates: start: 20080804, end: 20080921
  24. CROSS EIGHT M [Concomitant]
     Indication: FACTOR VIII DEFICIENCY
     Dates: start: 20080922, end: 20090107
  25. CROSS EIGHT M [Concomitant]
     Indication: FACTOR VIII DEFICIENCY
     Dates: start: 20090108
  26. ISENTRESS [Concomitant]
     Indication: ACQUIRED IMMUNODEFICIENCY SYNDROME
     Route: 048
     Dates: start: 20080908
  27. CIPROXAN [Concomitant]
     Indication: EPIDIDYMITIS
     Dosage: 300MG TWICE PER DAY
     Route: 042
     Dates: start: 20081020, end: 20081030
  28. HUMALOG MIX [Concomitant]
     Indication: DIABETES MELLITUS
     Dosage: 16IU TWICE PER DAY
     Route: 058
     Dates: start: 20080511, end: 20080802
  29. HUMALOG MIX [Concomitant]
     Indication: DIABETES MELLITUS
     Dosage: 18IU THREE TIMES PER DAY
     Route: 058
     Dates: start: 20081110, end: 20081207
  30. LEVEMIR [Concomitant]
     Indication: DIABETES MELLITUS
     Dosage: 5IU PER DAY
     Route: 058
     Dates: start: 20080723, end: 20080802
  31. LEVEMIR [Concomitant]
     Indication: DIABETES MELLITUS
     Dosage: 8IU PER DAY
     Route: 058
     Dates: start: 20080824, end: 20081109
  32. HUMULIN R [Concomitant]
     Indication: DIABETES MELLITUS
     Route: 058
     Dates: start: 20080817, end: 20080823
  33. HUMALOG [Concomitant]
     Indication: DIABETES MELLITUS
     Dosage: 8IU TWICE PER DAY
     Route: 058
     Dates: start: 20081026, end: 20081109
  34. HUMALOG [Concomitant]
     Indication: DIABETES MELLITUS
     Dosage: 17IU TWICE PER DAY
     Route: 058
     Dates: start: 20081208, end: 20090130
  35. HUMALOG [Concomitant]
     Indication: DIABETES MELLITUS
     Dosage: 20IU THREE TIMES PER DAY
     Route: 058
     Dates: start: 20090221, end: 20090304
  36. LANTUS [Concomitant]
     Indication: DIABETES MELLITUS
     Dosage: 16IU PER DAY
     Route: 058
     Dates: start: 20081208, end: 20090128
  37. LANTUS [Concomitant]
     Indication: DIABETES MELLITUS
     Dosage: 10IU PER DAY
     Route: 058
     Dates: start: 20090204, end: 20090327
  38. OMEPRAL [Concomitant]
     Indication: PROPHYLAXIS AGAINST GASTROINTESTINAL ULCER
     Dosage: 20MG TWICE PER DAY
     Route: 065
     Dates: start: 20080911, end: 20080918
  39. RISPERDAL [Concomitant]
     Indication: PANIC DISORDER
     Dosage: 1MG TWICE PER DAY
     Route: 065
     Dates: start: 20090212
  40. RENIVACE [Concomitant]
     Indication: HYPERTENSION
     Dosage: 5MG PER DAY
     Route: 048
     Dates: start: 20090212
  41. CONIEL [Concomitant]
     Indication: HYPERTENSION
     Dosage: 4MG PER DAY
     Route: 048
     Dates: start: 20090224
  42. ATROPINE SULFATE [Concomitant]
     Indication: RENAL FAILURE ACUTE
     Route: 042
     Dates: start: 20080804, end: 20080804
  43. FUROSEMIDE [Concomitant]
     Indication: RENAL FAILURE ACUTE
     Route: 042
     Dates: start: 20080804, end: 20080804
  44. FUROSEMIDE [Concomitant]
     Indication: RENAL FAILURE ACUTE
     Dosage: 20MG PER DAY
     Route: 042
     Dates: start: 20080804, end: 20080804
  45. FUROSEMIDE [Concomitant]
     Indication: RENAL FAILURE ACUTE
     Dosage: 40MG PER DAY
     Route: 042
     Dates: start: 20080804, end: 20080804
  46. SEISHOKU [Concomitant]
     Indication: RENAL FAILURE ACUTE
     Route: 042
     Dates: start: 20080804, end: 20080804

REACTIONS (2)
  - Chronic hepatitis C [Not Recovered/Not Resolved]
  - Dysgeusia [Recovered/Resolved]
